FAERS Safety Report 20570663 (Version 1)
Quarter: 2022Q1

REPORT INFORMATION
  Report Type: Spontaneous
  Country: FR (occurrence: FR)
  Receive Date: 20220309
  Receipt Date: 20220309
  Transmission Date: 20220423
  Serious: Yes (Hospitalization, Other)
  Sender: FDA-Public Use
  Company Number: FR-AFSSAPS-MP20221174

PATIENT
  Age: 95 Year
  Sex: Female
  Weight: 53 kg

DRUGS (5)
  1. ACETAMINOPHEN [Suspect]
     Active Substance: ACETAMINOPHEN
     Indication: Diverticulitis
     Dosage: 3 GRAM, ONCE A DAY
     Route: 048
     Dates: start: 20220204, end: 20220221
  2. ONDANSETRON [Suspect]
     Active Substance: ONDANSETRON
     Indication: Diverticulitis
     Dosage: 16 MILLIGRAM, ONCE A DAY
     Route: 040
     Dates: start: 20220215, end: 20220221
  3. CEFTRIAXONE [Suspect]
     Active Substance: CEFTRIAXONE
     Indication: Diverticulitis
     Dosage: 1 GRAM, ONCE A DAY
     Route: 041
     Dates: start: 20220207, end: 20220217
  4. FLAGYL [Suspect]
     Active Substance: METRONIDAZOLE\METRONIDAZOLE HYDROCHLORIDE
     Indication: Diverticulitis
     Dosage: 1 TABLET MORNING, NOON AND EVENING
     Route: 048
     Dates: start: 20220207, end: 20220217
  5. TRIMEBUTINE MALEATE [Suspect]
     Active Substance: TRIMEBUTINE MALEATE
     Indication: Diverticulitis
     Dosage: 300 MILLIGRAM, ONCE A DAY
     Route: 048
     Dates: start: 20220204, end: 20220221

REACTIONS (1)
  - Neutropenia [Not Recovered/Not Resolved]

NARRATIVE: CASE EVENT DATE: 20220217
